FAERS Safety Report 6831765-7 (Version None)
Quarter: 2010Q3

REPORT INFORMATION
  Report Type: 
  Country: None (occurrence: None)
  Receive Date: 20100706
  Receipt Date: 20100630
  Transmission Date: 20110219
  Serious: Yes (Life-Threatening, Hospitalization, Other)
  Sender: FDA-Public Use
  Company Number: 2010SP029881

PATIENT
  Age: 38 Year
  Sex: Female
  Weight: 53 kg

DRUGS (6)
  1. PEG-INTRON [Suspect]
     Indication: HEPATITIS C
     Dosage: 80 MCG, QW, SC
     Route: 058
     Dates: start: 20080711, end: 20090724
  2. REBETOL [Suspect]
     Indication: HEPATITIS C
     Dosage: 600 MG, QD, PO, 400 MG, QD, PO; 200 MG, QD, PO
     Route: 048
     Dates: start: 20080711, end: 20090724
  3. GASTER D [Concomitant]
  4. URSO 250 [Concomitant]
  5. PROHEPARUM (LIVER HYDROLYSATE COMBINED DRUG) [Concomitant]
  6. MILMAG [Concomitant]

REACTIONS (10)
  - ANAEMIA [None]
  - AUTOIMMUNE THYROIDITIS [None]
  - HEPATIC ENCEPHALOPATHY [None]
  - HEPATIC FAILURE [None]
  - HEPATIC NECROSIS [None]
  - HEPATITIS FULMINANT [None]
  - HYPOTHYROIDISM [None]
  - LIVER TRANSPLANT [None]
  - PROTHROMBIN TIME PROLONGED [None]
  - THERAPEUTIC RESPONSE DECREASED [None]
